FAERS Safety Report 24334176 (Version 1)
Quarter: 2024Q3

REPORT INFORMATION
  Report Type: Spontaneous
  Country: US (occurrence: US)
  Receive Date: 20240918
  Receipt Date: 20240918
  Transmission Date: 20241017
  Serious: Yes (Hospitalization)
  Sender: JOHNSON AND JOHNSON
  Company Number: US-JNJFOC-20240924423

PATIENT
  Age: 55 Year
  Sex: Male
  Weight: 122 kg

DRUGS (20)
  1. OPSUMIT [Suspect]
     Active Substance: MACITENTAN
     Indication: Product used for unknown indication
     Route: 048
  2. REMODULIN [Suspect]
     Active Substance: TREPROSTINIL
     Indication: Pulmonary arterial hypertension
     Dosage: (SELF FILL WITH 1.7ML PER CASSETTE; PUMP RATE 17MCL PER HOUR)
     Route: 058
     Dates: start: 20240717
  3. SPIRONOLACTONE [Concomitant]
     Active Substance: SPIRONOLACTONE
  4. FOLIC ACID [Concomitant]
     Active Substance: FOLIC ACID
  5. TRESIBA [Concomitant]
     Active Substance: INSULIN DEGLUDEC
  6. SODIUM CHLORIDE [Concomitant]
     Active Substance: SODIUM CHLORIDE
  7. BUMETANIDE [Concomitant]
     Active Substance: BUMETANIDE
  8. KETAMINE HYDROCHLORIDE [Concomitant]
     Active Substance: KETAMINE HYDROCHLORIDE
  9. LECITHIN [Concomitant]
     Active Substance: LECITHIN
  10. SILDENAFIL CITRATE [Concomitant]
     Active Substance: SILDENAFIL CITRATE
  11. THIAMINE HYDROCHLORIDE [Concomitant]
     Active Substance: THIAMINE HYDROCHLORIDE
  12. CLONIDINE [Concomitant]
     Active Substance: CLONIDINE
  13. KETOPROFEN [Concomitant]
     Active Substance: KETOPROFEN
  14. LISINOPRIL [Concomitant]
     Active Substance: LISINOPRIL
  15. LIDOCAINE HYDROCHLORIDE [Concomitant]
     Active Substance: LIDOCAINE HYDROCHLORIDE
  16. AMITRIPTYLINE [Concomitant]
     Active Substance: AMITRIPTYLINE
  17. GABAPENTIN [Concomitant]
     Active Substance: GABAPENTIN
  18. POLOXAMER [Concomitant]
     Active Substance: POLOXAMER
  19. METFORMIN [Concomitant]
     Active Substance: METFORMIN HYDROCHLORIDE
  20. MAGNESIUM [Concomitant]
     Active Substance: MAGNESIUM

REACTIONS (3)
  - Acute kidney injury [Unknown]
  - Pain in extremity [Unknown]
  - Device dislocation [Unknown]

NARRATIVE: CASE EVENT DATE: 20240801
